FAERS Safety Report 9527975 (Version 1)
Quarter: 2013Q1

REPORT INFORMATION
  Report Type: Spontaneous
  Country: US (occurrence: None)
  Receive Date: 20130314
  Receipt Date: 20130314
  Transmission Date: 20140127
  Serious: No
  Sender: FDA-Public Use
  Company Number: 1211USA008711

PATIENT
  Age: 43 Year
  Sex: Male

DRUGS (3)
  1. PEGINTRON (PEGINTERFERON ALFA-2B) POWDER FOR INJECTION [Suspect]
     Indication: HEPATITIS C
     Dosage: UNK, SUBCUTANEOUS
     Route: 058
     Dates: start: 20121116
  2. RIBAVIRIN (RIBAVIRIN) TABLET, 200 MG [Suspect]
     Indication: HEPATITIS C
  3. VICTRELIS (BOCEPREVIR) CAPSULE [Suspect]
     Indication: HEPATITIS C
     Dosage: UNK, ORAL
     Route: 048
     Dates: start: 20121217

REACTIONS (10)
  - Injection site erythema [None]
  - Dysgeusia [None]
  - Headache [None]
  - Dizziness [None]
  - Chills [None]
  - Feeling hot [None]
  - Hyperhidrosis [None]
  - Back pain [None]
  - Pruritus [None]
  - Tremor [None]
